FAERS Safety Report 21390776 (Version 1)
Quarter: 2022Q3

REPORT INFORMATION
  Report Type: Spontaneous
  Country: US (occurrence: None)
  Receive Date: 20220928
  Receipt Date: 20220928
  Transmission Date: 20221027
  Serious: Yes (Death, Hospitalization)
  Sender: FDA-Public Use
  Company Number: None

PATIENT
  Sex: Male
  Weight: 62.3 kg

DRUGS (3)
  1. ACALABRUTINIB [Suspect]
     Active Substance: ACALABRUTINIB
     Dates: end: 20220727
  2. BENDAMUSTINE HYDROCHLORIDE [Suspect]
     Active Substance: BENDAMUSTINE HYDROCHLORIDE
     Dates: end: 20220629
  3. RITUXIMAB [Suspect]
     Active Substance: RITUXIMAB
     Dates: end: 20220701

REACTIONS (13)
  - Thrombocytopenia [None]
  - Fatigue [None]
  - Asthenia [None]
  - Diarrhoea [None]
  - Dyspnoea [None]
  - Leukocytosis [None]
  - Decreased appetite [None]
  - Hypercalcaemia [None]
  - Blood lactic acid increased [None]
  - Hyperbilirubinaemia [None]
  - Disease progression [None]
  - Cardiac arrest [None]
  - Respiratory arrest [None]

NARRATIVE: CASE EVENT DATE: 20220803
